FAERS Safety Report 10993378 (Version 1)
Quarter: 2015Q2

REPORT INFORMATION
  Report Type: Spontaneous
  Country: GB (occurrence: GB)
  Receive Date: 20150407
  Receipt Date: 20150407
  Transmission Date: 20150821
  Serious: Yes (Life-Threatening, Hospitalization)
  Sender: FDA-Public Use
  Company Number: GB-ROCHE-1560513

PATIENT
  Age: 52 Year
  Sex: Female
  Weight: 91 kg

DRUGS (14)
  1. CETIRIZINE [Concomitant]
     Active Substance: CETIRIZINE HYDROCHLORIDE
     Route: 065
  2. DIAZEPAM. [Concomitant]
     Active Substance: DIAZEPAM
     Route: 065
  3. FERROUS FUMARATE [Concomitant]
     Active Substance: FERROUS FUMARATE
     Route: 065
  4. TRIFLUOPERAZINE [Concomitant]
     Active Substance: TRIFLUOPERAZINE\TRIFLUOPERAZINE HYDROCHLORIDE
     Route: 065
  5. SIMVASTATIN. [Concomitant]
     Active Substance: SIMVASTATIN
     Route: 065
  6. ORLISTAT [Suspect]
     Active Substance: ORLISTAT
     Indication: OBESITY
     Route: 048
     Dates: start: 201503
  7. ZOPICLONE [Concomitant]
     Active Substance: ZOPICLONE
     Route: 065
  8. CICLESONIDE [Concomitant]
     Active Substance: CICLESONIDE
     Route: 065
  9. LACTULOSE. [Concomitant]
     Active Substance: LACTULOSE
     Route: 065
  10. PANTOPRAZOLE [Concomitant]
     Active Substance: PANTOPRAZOLE SODIUM
     Route: 065
  11. QUETIAPINE [Concomitant]
     Active Substance: QUETIAPINE
     Route: 065
  12. ADCAL - D3 [Concomitant]
     Route: 065
  13. BRICANYL [Concomitant]
     Active Substance: TERBUTALINE SULFATE
     Route: 065
  14. FLUOXETINE [Concomitant]
     Active Substance: FLUOXETINE\FLUOXETINE HYDROCHLORIDE
     Route: 065

REACTIONS (3)
  - Dyspnoea [Not Recovered/Not Resolved]
  - Pneumonitis [Not Recovered/Not Resolved]
  - Hypoxia [Not Recovered/Not Resolved]

NARRATIVE: CASE EVENT DATE: 201503
